FAERS Safety Report 12083755 (Version 1)
Quarter: 2016Q1

REPORT INFORMATION
  Report Type: Spontaneous
  Country: CH (occurrence: CH)
  Receive Date: 20160217
  Receipt Date: 20160217
  Transmission Date: 20160526
  Serious: Yes (Hospitalization, Disabling, Other)
  Sender: FDA-Public Use
  Company Number: CH-AMGEN-CHESP2016017159

PATIENT
  Age: 56 Year
  Sex: Female

DRUGS (4)
  1. PROLIA [Suspect]
     Active Substance: DENOSUMAB
     Indication: OSTEOPOROSIS
     Dosage: 60 MG, Q6MO
     Route: 058
     Dates: start: 2011
  2. DAFALGAN [Concomitant]
     Active Substance: ACETAMINOPHEN
     Indication: PAIN MANAGEMENT
     Dosage: UNK UNK, AS NECESSARY
     Route: 048
  3. CALCIMAGON D3 [Concomitant]
     Active Substance: CALCIUM\CHOLECALCIFEROL
     Indication: OSTEOPOROSIS
     Dosage: UNK UNK, QD
     Route: 048
  4. ARCOXIA [Concomitant]
     Active Substance: ETORICOXIB
     Indication: PAIN MANAGEMENT
     Dosage: UNK UNK, AS NECESSARY
     Route: 048

REACTIONS (4)
  - Pathological fracture [Recovered/Resolved with Sequelae]
  - Back pain [Recovered/Resolved]
  - Thoracic vertebral fracture [Recovered/Resolved with Sequelae]
  - Lumbar vertebral fracture [Recovered/Resolved with Sequelae]

NARRATIVE: CASE EVENT DATE: 201510
